FAERS Safety Report 9133027 (Version 2)
Quarter: 2013Q1

REPORT INFORMATION
  Report Type: Spontaneous
  Country: US (occurrence: US)
  Receive Date: 20130301
  Receipt Date: 20130304
  Transmission Date: 20140127
  Serious: No
  Sender: FDA-Public Use
  Company Number: US-TEVA-388651USA

PATIENT
  Sex: Female

DRUGS (1)
  1. FENTORA [Suspect]
     Indication: ADENOMYOSIS
     Route: 002

REACTIONS (2)
  - Drug ineffective for unapproved indication [Unknown]
  - Product physical issue [Unknown]
